FAERS Safety Report 10267452 (Version 1)
Quarter: 2014Q2

REPORT INFORMATION
  Report Type: Spontaneous
  Country: US (occurrence: None)
  Receive Date: 20140626
  Receipt Date: 20140626
  Transmission Date: 20141212
  Serious: No
  Sender: FDA-Public Use
  Company Number: None

PATIENT
  Age: 40 Year
  Sex: Male

DRUGS (6)
  1. TECFIDERA [Suspect]
     Indication: MULTIPLE SCLEROSIS
     Route: 048
  2. ONDANSETRON [Concomitant]
  3. HYDOXYZINE [Concomitant]
  4. FAMOTIDINE [Concomitant]
  5. CITALOPRAM [Concomitant]
  6. BETHANECHOL [Concomitant]

REACTIONS (1)
  - Dry mouth [None]
